FAERS Safety Report 6390933-1 (Version None)
Quarter: 2009Q4

REPORT INFORMATION
  Report Type: 
  Country: None (occurrence: None)
  Receive Date: 20091003
  Receipt Date: 20090922
  Transmission Date: 20100525
  Serious: Yes (Life-Threatening, Hospitalization)
  Sender: FDA-Public Use
  Company Number: 20096794

PATIENT
  Age: 58 Year
  Sex: Female

DRUGS (1)
  1. BACLOFEN [Suspect]
     Indication: MUSCLE SPASTICITY
     Dosage: MCG, DAILY, INTRATHECAL
     Route: 039
     Dates: start: 20080701

REACTIONS (10)
  - ANAEMIA [None]
  - ARTHRALGIA [None]
  - CONDITION AGGRAVATED [None]
  - DEVICE FAILURE [None]
  - FALL [None]
  - FRACTURE [None]
  - GASTRIC ULCER [None]
  - MEDICAL DEVICE COMPLICATION [None]
  - MUSCLE SPASTICITY [None]
  - PAIN [None]
